FAERS Safety Report 15920985 (Version 1)
Quarter: 2019Q1

REPORT INFORMATION
  Report Type: Spontaneous
  Country: GB (occurrence: GB)
  Receive Date: 20190205
  Receipt Date: 20190205
  Transmission Date: 20190417
  Serious: Yes (Life-Threatening, Hospitalization)
  Sender: FDA-Public Use
  Company Number: GXKR2008GB02381

PATIENT
  Age: 25 Year
  Sex: Female
  Weight: 67 kg

DRUGS (1)
  1. PARACETAMOL [Suspect]
     Active Substance: ACETAMINOPHEN
     Indication: PRODUCT USED FOR UNKNOWN INDICATION
     Route: 048

REACTIONS (5)
  - Acute hepatic failure [Recovered/Resolved]
  - Encephalopathy [Unknown]
  - Overdose [Recovered/Resolved]
  - Cytomegalovirus test positive [Recovered/Resolved]
  - Intentional overdose [Recovered/Resolved]
